FAERS Safety Report 8818937 (Version 2)
Quarter: 2013Q2

REPORT INFORMATION
  Report Type: Spontaneous
  Country: DE (occurrence: None)
  Receive Date: 20121002
  Receipt Date: 20130612
  Transmission Date: 20140414
  Serious: Yes (Other)
  Sender: FDA-Public Use
  Company Number: HRA-CDB20120263

PATIENT
  Age: 31 Year
  Sex: Female

DRUGS (1)
  1. ELLAONE [Suspect]
     Indication: CONTRACEPTION
     Route: 048
     Dates: start: 20120626

REACTIONS (2)
  - Unintended pregnancy [None]
  - Selective abortion [None]
